FAERS Safety Report 22586810 (Version 3)
Quarter: 2023Q2

REPORT INFORMATION
  Report Type: Report from Study
  Country: CA (occurrence: CA)
  Receive Date: 20230611
  Receipt Date: 20230620
  Transmission Date: 20230722
  Serious: Yes (Other)
  Sender: FDA-Public Use
  Company Number: CA-ABBVIE-5281636

PATIENT
  Sex: Female

DRUGS (2)
  1. RINVOQ [Suspect]
     Active Substance: UPADACITINIB
     Indication: Psoriatic arthropathy
     Dosage: FORM STRENGTH: 15 MILLIGRAM
     Route: 048
     Dates: start: 20230324
  2. OZEMPIC [Suspect]
     Active Substance: SEMAGLUTIDE
     Indication: Product used for unknown indication
     Route: 065

REACTIONS (11)
  - Suicidal ideation [Unknown]
  - Fluid replacement [Unknown]
  - Dyspepsia [Unknown]
  - Nausea [Unknown]
  - Stomatitis [Unknown]
  - Psoriasis [Unknown]
  - Oral herpes [Unknown]
  - Gastric disorder [Unknown]
  - Therapeutic product effect incomplete [Unknown]
  - Muscle spasms [Unknown]
  - Menopause [Unknown]

NARRATIVE: CASE EVENT DATE: 20230101
